FAERS Safety Report 5411268-7 (Version None)
Quarter: 2007Q3

REPORT INFORMATION
  Report Type: 
  Country: None (occurrence: None)
  Receive Date: 20070810
  Receipt Date: 20070801
  Transmission Date: 20080115
  Serious: Yes (Other)
  Sender: FDA-Public Use
  Company Number: JP-ROCHE-490865

PATIENT
  Age: 16 Year
  Sex: Male
  Weight: 61 kg

DRUGS (4)
  1. TAMIFLU [Suspect]
     Route: 048
     Dates: start: 20070305, end: 20070306
  2. TAMIFLU [Suspect]
     Route: 048
     Dates: start: 20070307, end: 20070307
  3. DEPAKENE [Concomitant]
     Dosage: FORM: FINE GRANULE.
     Route: 048
     Dates: start: 19971213
  4. DESMOPRESSIN ACETATE [Concomitant]
     Route: 045
     Dates: start: 20050930

REACTIONS (1)
  - ABNORMAL BEHAVIOUR [None]
